FAERS Safety Report 23075246 (Version 1)
Quarter: 2023Q4

REPORT INFORMATION
  Report Type: Spontaneous
  Country: US (occurrence: US)
  Receive Date: 20231017
  Receipt Date: 20231017
  Transmission Date: 20240110
  Serious: No
  Sender: FDA-Public Use
  Company Number: US-SA-SAC20231011000088

PATIENT
  Age: 73 Year
  Sex: Male
  Weight: 113 kg

DRUGS (14)
  1. DUPIXENT [Suspect]
     Active Substance: DUPILUMAB
     Indication: Asthma
     Dosage: 200 MG, OTHER
     Route: 058
  2. SPIRIVA [Concomitant]
     Active Substance: TIOTROPIUM BROMIDE MONOHYDRATE
  3. VITAMIN D3 [Concomitant]
     Active Substance: CHOLECALCIFEROL
  4. VITAMINS NOS [Concomitant]
     Active Substance: VITAMINS
  5. ROSUVASTATIN [Concomitant]
     Active Substance: ROSUVASTATIN
  6. OMEPRAZOLE [Concomitant]
     Active Substance: OMEPRAZOLE
  7. MONTELUKAST [Concomitant]
     Active Substance: MONTELUKAST SODIUM
  8. ICOSAPENT ETHYL [Concomitant]
     Active Substance: ICOSAPENT ETHYL
  9. GABAPENTIN [Concomitant]
     Active Substance: GABAPENTIN
  10. LASIX [Concomitant]
     Active Substance: FUROSEMIDE
  11. CHLORPROMAZINE [Concomitant]
     Active Substance: CHLORPROMAZINE
  12. ASPIRIN [Concomitant]
     Active Substance: ASPIRIN
  13. LEVOCETIRIZINE DIHYDROCHLORIDE [Concomitant]
     Active Substance: LEVOCETIRIZINE DIHYDROCHLORIDE
  14. ALEVE [Concomitant]
     Active Substance: NAPROXEN SODIUM

REACTIONS (1)
  - Therapeutic response unexpected [Unknown]
